FAERS Safety Report 7098675-4 (Version None)
Quarter: 2010Q4

REPORT INFORMATION
  Report Type: 
  Country: None (occurrence: None)
  Receive Date: 20101112
  Receipt Date: 20101103
  Transmission Date: 20110411
  Serious: Yes (Other)
  Sender: FDA-Public Use
  Company Number: VE-PFIZER INC-2010136150

PATIENT
  Age: 64 Year
  Sex: Female

DRUGS (5)
  1. LIPITOR [Suspect]
     Indication: BLOOD CHOLESTEROL INCREASED
     Dosage: 40 MG, 1X/DAY
     Route: 048
     Dates: start: 20100801, end: 20101001
  2. LANTUS [Concomitant]
     Indication: BLOOD GLUCOSE INCREASED
     Dosage: 35 IU, 1X/DAY
  3. DAFLON [Concomitant]
     Dosage: 500 MG, 2X/DAY
     Route: 048
  4. VYTORIN [Concomitant]
     Indication: HYPERTENSION
     Dosage: UNK
     Route: 048
  5. PLAVIX [Concomitant]
     Dosage: 75 MG, 1X/DAY
     Route: 048

REACTIONS (1)
  - BLOOD GLUCOSE INCREASED [None]
